FAERS Safety Report 7629847 (Version 6)
Quarter: 2017Q3

REPORT INFORMATION
  Report Type: Report from Study
  Country: JP (occurrence: JP)
  Receive Date: 20101014
  Receipt Date: 20170914
  Transmission Date: 20171128
  Serious: Yes (Other)
  Sender: FDA-Public Use
  Company Number: PHHY2010JP65712

PATIENT
  Age: 48 Year
  Sex: Male
  Weight: 65 kg

DRUGS (4)
  1. AFINITOR [Suspect]
     Active Substance: EVEROLIMUS
     Indication: METASTATIC RENAL CELL CARCINOMA
     Dosage: 10 MG, QD
     Route: 048
     Dates: start: 20100621
  2. LOXONIN [Concomitant]
     Active Substance: LOXOPROFEN SODIUM
     Indication: PROPHYLAXIS
     Dosage: 1 DF, QD
     Route: 048
     Dates: start: 20110222, end: 20110222
  3. AZUNOL [Concomitant]
     Active Substance: SODIUM GUALENATE
     Indication: STOMATITIS
     Dosage: UNK UKN, UNK
     Route: 065
     Dates: start: 20100727, end: 20100810
  4. POSTERISAN [Concomitant]
     Active Substance: LIDOCAINE
     Indication: PROCTALGIA
     Dosage: 2 DF, UNK
     Route: 065
     Dates: start: 20100824, end: 20101102

REACTIONS (15)
  - Malignant neoplasm progression [Not Recovered/Not Resolved]
  - Epistaxis [Recovered/Resolved]
  - Blood creatinine increased [Recovered/Resolved]
  - Skin exfoliation [Recovered/Resolved]
  - Neoplasm progression [Not Recovered/Not Resolved]
  - Epistaxis [Recovered/Resolved]
  - Epistaxis [Recovered/Resolved]
  - Blood creatinine increased [Not Recovered/Not Resolved]
  - Haematocrit decreased [Unknown]
  - Proctalgia [Recovered/Resolved]
  - Stomatitis [Recovered/Resolved]
  - Face oedema [Recovered/Resolved]
  - Arthralgia [Recovered/Resolved]
  - Stomatitis [Recovered/Resolved]
  - Blood glucose increased [Unknown]

NARRATIVE: CASE EVENT DATE: 20100628
